FAERS Safety Report 15606387 (Version 3)
Quarter: 2020Q1

REPORT INFORMATION
  Report Type: Report from Study
  Country: None (occurrence: US)
  Receive Date: 20181112
  Receipt Date: 20200204
  Transmission Date: 20200409
  Serious: Yes (Other)
  Sender: FDA-Public Use
  Company Number: US-ABBVIE-18K-163-2328122-00

PATIENT
  Age: 63 Year
  Sex: Female
  Weight: 72.64 kg

DRUGS (2)
  1. HUMIRA [Suspect]
     Active Substance: ADALIMUMAB
     Indication: PSORIATIC ARTHROPATHY
  2. HUMIRA [Suspect]
     Active Substance: ADALIMUMAB
     Indication: RHEUMATOID ARTHRITIS
     Route: 058
     Dates: end: 2018

REACTIONS (12)
  - Osteoarthritis [Unknown]
  - Muscular weakness [Unknown]
  - Injection site pain [Unknown]
  - Humidity intolerance [Unknown]
  - Swelling [Unknown]
  - Pain in extremity [Unknown]
  - Arthralgia [Unknown]
  - Injection site extravasation [Unknown]
  - Blood creatinine increased [Unknown]
  - Clavicle fracture [Unknown]
  - Fall [Unknown]
  - Tremor [Unknown]

NARRATIVE: CASE EVENT DATE: 201801
